FAERS Safety Report 4730574-2 (Version None)
Quarter: 2005Q3

REPORT INFORMATION
  Report Type: 
  Country: None (occurrence: None)
  Receive Date: 20050725
  Receipt Date: 20050208
  Transmission Date: 20060218
  Serious: No
  Sender: FDA-Public Use
  Company Number: USA050393367

PATIENT
  Sex: Male
  Weight: 26 kg

DRUGS (1)
  1. STRATTERA [Suspect]
     Dosage: 60 MG/ 1 DAY

REACTIONS (1)
  - PRESCRIBED OVERDOSE [None]
